FAERS Safety Report 25598599 (Version 2)
Quarter: 2025Q3

REPORT INFORMATION
  Report Type: Spontaneous
  Country: JP (occurrence: JP)
  Receive Date: 20250723
  Receipt Date: 20250902
  Transmission Date: 20251021
  Serious: Yes (Other)
  Sender: ABBVIE
  Company Number: JP-TAKEDA-2025TJP007268

PATIENT
  Age: 60 Year
  Sex: Male

DRUGS (1)
  1. LEUPLIN [Suspect]
     Active Substance: LEUPROLIDE ACETATE
     Indication: Prostate cancer
     Dosage: 11.25 MILLIGRAM, Q3MONTHS?SR
     Route: 058

REACTIONS (1)
  - Injection site ulcer [Recovered/Resolved]

NARRATIVE: CASE EVENT DATE: 20250601
